FAERS Safety Report 26057427 (Version 1)
Quarter: 2025Q4

REPORT INFORMATION
  Report Type: Spontaneous
  Country: US (occurrence: US)
  Receive Date: 20251118
  Receipt Date: 20251118
  Transmission Date: 20260118
  Serious: No
  Sender: ELI LILLY AND COMPANY
  Company Number: US-ELI_LILLY_AND_COMPANY-US202511012669

PATIENT
  Age: 56 Year
  Sex: Male

DRUGS (1)
  1. VERZENIO [Suspect]
     Active Substance: ABEMACICLIB
     Indication: Breast cancer
     Dosage: 150 MG, BID
     Route: 048

REACTIONS (6)
  - Product dose omission issue [Unknown]
  - Insomnia [Unknown]
  - Dyspnoea exertional [Unknown]
  - Panic attack [Unknown]
  - Anxiety [Unknown]
  - Fatigue [Unknown]
